FAERS Safety Report 18883619 (Version 2)
Quarter: 2021Q1

REPORT INFORMATION
  Report Type: Spontaneous
  Country: NL (occurrence: NL)
  Receive Date: 20210212
  Receipt Date: 20210223
  Transmission Date: 20210420
  Serious: Yes (Hospitalization, Disabling, Other)
  Sender: FDA-Public Use
  Company Number: NL-TEVA-2021-NL-1878643

PATIENT
  Age: 55 Year
  Sex: Female
  Weight: 90 kg

DRUGS (3)
  1. LEVOFLOXACINE TABLET OMHULD 500MG / BRAND NAME NOT SPECIFIED [Suspect]
     Active Substance: LEVOFLOXACIN
     Dosage: 2 DOSAGE FORMS DAILY; THERAPY START DATE: ASKED BUT UNKNOWN
     Route: 065
     Dates: end: 20210110
  2. LEVOFLOXACINE TABLET OMHULD 500MG / BRAND NAME NOT SPECIFIED [Suspect]
     Active Substance: LEVOFLOXACIN
     Indication: POST PROCEDURAL INFECTION
     Dosage: 1 DOSAGE FORMS DAILY;  THERAPY END DATE : ASKED BUT UNKNOWN
     Route: 065
     Dates: start: 20201120
  3. RIFADIN [Suspect]
     Active Substance: RIFAMPIN
     Indication: POST PROCEDURAL INFECTION
     Dosage: 150 MG (MILLIGRAM)
     Dates: start: 20201120, end: 20210110

REACTIONS (18)
  - Anosmia [Not Recovered/Not Resolved]
  - Adrenal disorder [Unknown]
  - Blister [Not Recovered/Not Resolved]
  - Hyperpyrexia [Unknown]
  - Myalgia [Unknown]
  - Renal impairment [Not Recovered/Not Resolved]
  - Decreased appetite [Unknown]
  - Anaemia [Unknown]
  - Drug reaction with eosinophilia and systemic symptoms [Not Recovered/Not Resolved]
  - Ageusia [Not Recovered/Not Resolved]
  - Saliva discolouration [Not Recovered/Not Resolved]
  - Red blood cell count decreased [Not Recovered/Not Resolved]
  - Inflammation [Not Recovered/Not Resolved]
  - Movement disorder [Not Recovered/Not Resolved]
  - Yellow skin [Not Recovered/Not Resolved]
  - Tooth discolouration [Not Recovered/Not Resolved]
  - Insomnia [Unknown]
  - Chromaturia [Not Recovered/Not Resolved]

NARRATIVE: CASE EVENT DATE: 20201120
